FAERS Safety Report 23340457 (Version 1)
Quarter: 2023Q4

REPORT INFORMATION
  Report Type: Spontaneous
  Country: US (occurrence: US)
  Receive Date: 20231227
  Receipt Date: 20231227
  Transmission Date: 20240110
  Serious: Yes (Death, Other)
  Sender: FDA-Public Use
  Company Number: US-GLENMARK PHARMACEUTICALS-2023GMK087529

PATIENT

DRUGS (3)
  1. LIDOCAINE [Suspect]
     Active Substance: LIDOCAINE
     Indication: Nephrolithiasis
     Dosage: 2000 MILLIGRAM
     Route: 051
  2. VASOPRESSIN [Concomitant]
     Active Substance: VASOPRESSIN
     Indication: Anuria
  3. VASOPRESSIN [Concomitant]
     Active Substance: VASOPRESSIN
     Indication: Disseminated intravascular coagulation

REACTIONS (5)
  - Cardiac arrest [Fatal]
  - Disseminated intravascular coagulation [Fatal]
  - Anuria [Fatal]
  - Medication error [Fatal]
  - Overdose [Fatal]
